FAERS Safety Report 5836247-7 (Version None)
Quarter: 2008Q3

REPORT INFORMATION
  Report Type: 
  Country: None (occurrence: None)
  Receive Date: 20080730
  Receipt Date: 20080225
  Transmission Date: 20090109
  Serious: Yes (Other)
  Sender: FDA-Public Use
  Company Number: US-JNJFOC-20080100293

PATIENT
  Age: 70 Year
  Sex: Male
  Weight: 90.7194 kg

DRUGS (6)
  1. IMODIUM ADVANCED (LOPERAMIDE/SIMETHICONE) CHEWABLE TABLET [Suspect]
     Indication: DIARRHOEA
     Dosage: 40-100 CHEWABLE TABLETS AT A TIME
     Dates: start: 20071214
  2. ANTIHYPERTENSIVE MEDICATION (ANTIHYPERTENSIVES) [Concomitant]
  3. LASIX [Concomitant]
  4. POTASSIUM (POTASSIUM) [Concomitant]
  5. FLOMAX [Concomitant]
  6. GLYBURIDE [Concomitant]

REACTIONS (1)
  - INTENTIONAL OVERDOSE [None]
